FAERS Safety Report 16731901 (Version 1)
Quarter: 2019Q3

REPORT INFORMATION
  Report Type: Spontaneous
  Country: US (occurrence: US)
  Receive Date: 20190822
  Receipt Date: 20190822
  Transmission Date: 20191005
  Serious: No
  Sender: FDA-Public Use
  Company Number: US-TEVA-2019-US-1094638

PATIENT
  Sex: Female

DRUGS (1)
  1. CLONAZEPAM ORALLY DISINTEGRATING TABLET [Suspect]
     Active Substance: CLONAZEPAM
     Dosage: ORALLY DISINTEGRATING TABLET
     Route: 048

REACTIONS (4)
  - Product physical issue [Unknown]
  - Nausea [Unknown]
  - Discomfort [Unknown]
  - Feeling abnormal [Unknown]
